FAERS Safety Report 5040206-4 (Version None)
Quarter: 2006Q2

REPORT INFORMATION
  Report Type: 
  Country: None (occurrence: None)
  Receive Date: 20060630
  Receipt Date: 20060615
  Transmission Date: 20061013
  Serious: Yes (Life-Threatening, Other)
  Sender: FDA-Public Use
  Company Number: ZA-BRISTOL-MYERS SQUIBB COMPANY-13413430

PATIENT
  Age: 1 Year
  Sex: Female
  Weight: 8 kg

DRUGS (6)
  1. ATAZANAVIR [Suspect]
     Indication: HIV INFECTION
     Dosage: RESTARTED ON 07-JUN-2006
     Route: 048
     Dates: start: 20060308, end: 20060602
  2. STAVUDINE [Suspect]
     Indication: HIV INFECTION
     Dosage: RESTARTED ON 07-JUN-2006
     Route: 048
     Dates: start: 20060308, end: 20060602
  3. LAMIVUDINE [Suspect]
     Indication: HIV INFECTION
     Dosage: RESTARTED ON 07-JUN-2006
     Route: 048
     Dates: start: 20060308, end: 20060602
  4. RITONAVIR [Suspect]
     Indication: HIV INFECTION
     Dosage: RESTARTED ON 07-JUN-2006
     Route: 048
     Dates: start: 20060308, end: 20060602
  5. BACTRIM [Concomitant]
  6. MULTI-VITAMIN [Concomitant]

REACTIONS (4)
  - ALANINE AMINOTRANSFERASE INCREASED [None]
  - ASPARTATE AMINOTRANSFERASE INCREASED [None]
  - GAMMA-GLUTAMYLTRANSFERASE INCREASED [None]
  - HYPERBILIRUBINAEMIA [None]
